FAERS Safety Report 6053442-5 (Version None)
Quarter: 2009Q1

REPORT INFORMATION
  Report Type: 
  Country: None (occurrence: None)
  Receive Date: 20090127
  Receipt Date: 20080403
  Transmission Date: 20090719
  Serious: No
  Sender: FDA-Public Use
  Company Number: US-TEVA-169688USA

PATIENT
  Age: 57 Year
  Sex: Female

DRUGS (4)
  1. COPAXONE [Suspect]
     Indication: MULTIPLE SCLEROSIS
     Route: 058
  2. LEVETIRACETAM [Concomitant]
  3. OXYBUTYNIN CHLORIDE [Concomitant]
  4. FLUTICASONE PROPIONATE [Concomitant]

REACTIONS (5)
  - CHEST DISCOMFORT [None]
  - CHILLS [None]
  - MYALGIA [None]
  - PAIN [None]
  - PERIPHERAL COLDNESS [None]
